FAERS Safety Report 12603612 (Version 2)
Quarter: 2016Q3

REPORT INFORMATION
  Report Type: Spontaneous
  Country: FR (occurrence: FR)
  Receive Date: 20160728
  Receipt Date: 20160801
  Transmission Date: 20161109
  Serious: Yes (Death, Hospitalization, Other)
  Sender: FDA-Public Use
  Company Number: FR-KALEO, INC-2015SA214334

PATIENT
  Age: 48 Year
  Sex: Female

DRUGS (12)
  1. EPINEPHRINE. [Suspect]
     Active Substance: EPINEPHRINE
     Indication: JOINT IRRIGATION
     Dosage: UNK, 1 MG/L SALINE, JOINT IRRIGATION
  2. SUFENTANIL [Concomitant]
     Active Substance: SUFENTANIL
     Indication: GENERAL ANAESTHESIA
  3. EPINEPHRINE. [Suspect]
     Active Substance: EPINEPHRINE
     Dosage: 3MG/H
     Route: 065
  4. ROPIVACAINE HYDROCHLORIDE. [Concomitant]
     Active Substance: ROPIVACAINE HYDROCHLORIDE
     Indication: LOCAL ANAESTHESIA
     Dosage: DOSE:3.75 MILLIGRAM(S)/MILLILITRE
  5. CLONIDINE. [Concomitant]
     Active Substance: CLONIDINE
     Indication: LOCAL ANAESTHESIA
  6. LIDOCAINE. [Concomitant]
     Active Substance: LIDOCAINE
     Dosage: 2
  7. ACEBUTOLOL [Concomitant]
     Active Substance: ACEBUTOLOL
     Indication: HYPERTENSION
     Route: 048
  8. ALPRAZOLAM. [Concomitant]
     Active Substance: ALPRAZOLAM
     Indication: PREMEDICATION
     Route: 048
  9. CIMETIDINE [Concomitant]
     Active Substance: CIMETIDINE
     Indication: PREMEDICATION
     Route: 048
  10. LIDOCAINE WITH EPINEPHRINE [Concomitant]
     Active Substance: EPINEPHRINE BITARTRATE\LIDOCAINE HYDROCHLORIDE
     Indication: LOCAL ANAESTHESIA
     Dosage: 1%
  11. PROPOFOL. [Concomitant]
     Active Substance: PROPOFOL
     Indication: GENERAL ANAESTHESIA
  12. CISATRACURIUM. [Concomitant]
     Active Substance: CISATRACURIUM
     Indication: GENERAL ANAESTHESIA

REACTIONS (9)
  - Circulatory collapse [Fatal]
  - Multiple organ dysfunction syndrome [None]
  - Bradycardia [Fatal]
  - Tachycardia [Unknown]
  - Cardiogenic shock [Fatal]
  - Acute pulmonary oedema [Unknown]
  - Stress cardiomyopathy [Fatal]
  - Hypertension [Recovered/Resolved]
  - Disseminated intravascular coagulation [None]
